FAERS Safety Report 4289741-7 (Version None)
Quarter: 2004Q1

REPORT INFORMATION
  Report Type: 
  Country: None (occurrence: None)
  Receive Date: 20040206
  Receipt Date: 20040126
  Transmission Date: 20041129
  Serious: Yes (Death)
  Sender: FDA-Public Use
  Company Number: 04P-166-0248944-00

PATIENT
  Age: 33 Year
  Sex: Female
  Weight: 80 kg

DRUGS (4)
  1. MERIDIA [Suspect]
     Indication: OBESITY
     Dosage: 15 MG, 1 IN 1 D, ORAL
     Route: 048
     Dates: start: 20040120, end: 20040126
  2. FEMODENE [Concomitant]
  3. LORATADINE AND PSEUDOEPHEDRINE SULFATE [Concomitant]
  4. ASCORBIC ACID [Concomitant]

REACTIONS (2)
  - NERVOUSNESS [None]
  - ROAD TRAFFIC ACCIDENT [None]
